FAERS Safety Report 6722225-2 (Version None)
Quarter: 2010Q2

REPORT INFORMATION
  Report Type: 
  Country: None (occurrence: None)
  Receive Date: 20100512
  Receipt Date: 20100510
  Transmission Date: 20101027
  Serious: Yes (Other)
  Sender: FDA-Public Use
  Company Number: US-ROXANE LABORATORIES, INC.-2010-RO-00558RO

PATIENT
  Age: 63 Year
  Sex: Male

DRUGS (5)
  1. ROPINIROLE [Suspect]
     Indication: PARKINSON'S DISEASE
  2. CARBIDOPA-LEVODOPA [Suspect]
     Indication: PARKINSON'S DISEASE
  3. CARBIDOPA/LEVODOPA/ENTACAPONE [Suspect]
     Indication: PARKINSON'S DISEASE
  4. ROPINIROLE XL [Suspect]
     Indication: PARKINSON'S DISEASE
     Dosage: 8 MG
  5. ROPINIROLE XL [Suspect]
     Dosage: 12 MG

REACTIONS (2)
  - IMPULSIVE BEHAVIOUR [None]
  - MOTOR DYSFUNCTION [None]
